FAERS Safety Report 13044018 (Version 1)
Quarter: 2016Q4

REPORT INFORMATION
  Report Type: Spontaneous
  Country: US (occurrence: US)
  Receive Date: 20161220
  Receipt Date: 20161220
  Transmission Date: 20170207
  Serious: Yes (Other)
  Sender: FDA-Public Use
  Company Number: US-ROCHE-1014663

PATIENT
  Age: 73 Year
  Sex: Female
  Weight: 88.08 kg

DRUGS (5)
  1. ZELBORAF [Suspect]
     Active Substance: VEMURAFENIB
     Indication: METASTATIC MALIGNANT MELANOMA
     Route: 048
     Dates: start: 20111031
  2. COREG [Concomitant]
     Active Substance: CARVEDILOL
     Route: 065
  3. COREG [Concomitant]
     Active Substance: CARVEDILOL
     Route: 065
  4. HYZAAR [Concomitant]
     Active Substance: HYDROCHLOROTHIAZIDE\LOSARTAN POTASSIUM
     Dosage: 125
     Route: 065
  5. SAVELLA [Concomitant]
     Active Substance: MILNACIPRAN HYDROCHLORIDE
     Route: 065

REACTIONS (16)
  - Diarrhoea [Unknown]
  - Pruritus [Recovered/Resolved with Sequelae]
  - Sunburn [Unknown]
  - Decreased appetite [Unknown]
  - Peripheral swelling [Unknown]
  - Limb mass [Unknown]
  - Mole excision [Unknown]
  - Rash [Recovered/Resolved with Sequelae]
  - Myalgia [Unknown]
  - Fatigue [Unknown]
  - Vaginal discharge [Unknown]
  - Alopecia [Unknown]
  - Arthralgia [Unknown]
  - Blister [Unknown]
  - Nausea [Unknown]
  - Constipation [Recovered/Resolved with Sequelae]

NARRATIVE: CASE EVENT DATE: 201111
